FAERS Safety Report 14115526 (Version 1)
Quarter: 2017Q4

REPORT INFORMATION
  Report Type: Spontaneous
  Country: GB (occurrence: GB)
  Receive Date: 20171023
  Receipt Date: 20171023
  Transmission Date: 20180321
  Serious: Yes (Life-Threatening, Hospitalization)
  Sender: FDA-Public Use
  Company Number: GB-NOVOPROD-567954

PATIENT
  Age: 72 Year
  Sex: Male

DRUGS (7)
  1. TOUJEO [Suspect]
     Active Substance: INSULIN GLARGINE
     Dosage: 22 U, UNK
     Route: 051
     Dates: start: 20170725
  2. TOUJEO [Suspect]
     Active Substance: INSULIN GLARGINE
     Dosage: 26 U, UNK
     Route: 051
     Dates: start: 20170701
  3. TOUJEO [Suspect]
     Active Substance: INSULIN GLARGINE
     Dosage: 30 U, QD
     Route: 051
     Dates: end: 20170630
  4. NOVORAPID [Suspect]
     Active Substance: INSULIN ASPART
     Indication: TYPE 2 DIABETES MELLITUS
     Dosage: 6-8 U
     Route: 065
  5. TOUJEO [Suspect]
     Active Substance: INSULIN GLARGINE
     Indication: TYPE 2 DIABETES MELLITUS
     Dosage: 22 U, UNK
     Route: 051
     Dates: start: 2017
  6. TOUJEO [Suspect]
     Active Substance: INSULIN GLARGINE
     Dosage: 66 U, DOSE SPLIT INTO 2
     Route: 051
     Dates: start: 20170728, end: 20170730
  7. TOUJEO [Suspect]
     Active Substance: INSULIN GLARGINE
     Dosage: 20 U, UNK
     Route: 051
     Dates: start: 20170623

REACTIONS (6)
  - Apparent death [Unknown]
  - Hypoglycaemia [Recovered/Resolved]
  - Product use issue [Unknown]
  - Hypoglycaemia [Recovered/Resolved]
  - Drug administered in wrong device [Unknown]
  - Hyperglycaemia [Recovered/Resolved]

NARRATIVE: CASE EVENT DATE: 20170630
